FAERS Safety Report 5645057-5 (Version None)
Quarter: 2008Q1

REPORT INFORMATION
  Report Type: 
  Country: None (occurrence: None)
  Receive Date: 20080229
  Receipt Date: 20080220
  Transmission Date: 20080703
  Serious: Yes (Other)
  Sender: FDA-Public Use
  Company Number: US-JNJFOC-20080204816

PATIENT
  Age: 77 Year
  Sex: Male

DRUGS (1)
  1. REMICADE [Suspect]
     Indication: CROHN'S DISEASE
     Dosage: ^ABOUT 5 YEARS AGO^
     Route: 042

REACTIONS (2)
  - BONE NEOPLASM MALIGNANT [None]
  - DRUG INEFFECTIVE [None]
